FAERS Safety Report 20078057 (Version 1)
Quarter: 2021Q4

REPORT INFORMATION
  Report Type: Spontaneous
  Country: US (occurrence: None)
  Receive Date: 20211117
  Receipt Date: 20211117
  Transmission Date: 20220303
  Serious: No
  Sender: FDA-Public Use
  Company Number: 2021A785845

PATIENT
  Sex: Female
  Weight: 97 kg

DRUGS (11)
  1. FASLODEX [Suspect]
     Active Substance: FULVESTRANT
     Dosage: 250 MG/5ML
     Route: 058
  2. IBRANCE [Interacting]
     Active Substance: PALBOCICLIB
     Indication: Breast cancer female
     Route: 048
     Dates: start: 201811
  3. VITAMINS [Concomitant]
     Active Substance: VITAMINS
  4. VITAMIN C 1000 MG TABLET [Concomitant]
  5. CALCIUM 500(1250) TAB CHEW [Concomitant]
  6. VITAMIN 03 100000/G POWDER [Concomitant]
  7. PROLIA [Concomitant]
     Active Substance: DENOSUMAB
  8. OMEPRAZOLE 100% POWDER [Concomitant]
  9. LEVOTHYROXINE 125 MCG CAPSULE [Concomitant]
  10. TIADYLT ER 120 MG CAP SA 24H [Concomitant]
  11. FLECAINIDE ACETATE 100 MG TABLET [Concomitant]

REACTIONS (7)
  - Bone density decreased [Unknown]
  - Nausea [Unknown]
  - Diarrhoea [Unknown]
  - Oral pain [Unknown]
  - Onychoclasis [Unknown]
  - Nail discolouration [Unknown]
  - Alopecia [Unknown]
